FAERS Safety Report 15950333 (Version 1)
Quarter: 2019Q1

REPORT INFORMATION
  Report Type: Spontaneous
  Country: FR (occurrence: FR)
  Receive Date: 20190211
  Receipt Date: 20190211
  Transmission Date: 20190417
  Serious: Yes (Hospitalization)
  Sender: FDA-Public Use
  Company Number: FR-MYLANLABS-2019M1011303

PATIENT
  Age: 67 Year
  Sex: Female
  Weight: 56.6 kg

DRUGS (6)
  1. AMLODIPINE [Suspect]
     Active Substance: AMLODIPINE BESYLATE
     Indication: ISCHAEMIC STROKE
     Dosage: 5 MILLIGRAM, QD
     Route: 048
     Dates: start: 20180525, end: 20180718
  2. LANSOYL [Concomitant]
     Active Substance: MINERAL OIL
     Dosage: UNK
  3. PERINDOPRIL [Suspect]
     Active Substance: PERINDOPRIL
     Indication: ISCHAEMIC STROKE
     Dosage: 4 MILLIGRAM, QD
     Route: 048
     Dates: start: 20180525, end: 20180718
  4. EZETIMIBE. [Concomitant]
     Active Substance: EZETIMIBE
     Dosage: UNK
  5. KARDEGIC [Concomitant]
     Active Substance: ASPIRIN DL-LYSINE
     Dosage: UNK
  6. IZALGI [Concomitant]
     Active Substance: ACETAMINOPHEN\OPIUM
     Dosage: UNK

REACTIONS (2)
  - Malaise [Recovered/Resolved]
  - Polyuria [Unknown]

NARRATIVE: CASE EVENT DATE: 201807
